FAERS Safety Report 15285133 (Version 1)
Quarter: 2018Q4

REPORT INFORMATION
  Report Type: Spontaneous
  Country: IT (occurrence: IT)
  Receive Date: 20180816
  Receipt Date: 20180816
  Transmission Date: 20190204
  Serious: Yes (Other)
  Sender: FDA-Public Use
  Company Number: IT-TEVA-2018-IT-941625

PATIENT
  Age: 79 Year
  Sex: Female

DRUGS (5)
  1. HALCION [Suspect]
     Active Substance: TRIAZOLAM
     Indication: DEPRESSION
     Dosage: 1 DOSAGE FORMS DAILY;
     Route: 048
     Dates: start: 20180101, end: 20180619
  2. PLAUNAZIDE 20 MG/12,5 MG COMPRESSE RIVESTITE CON FILM [Concomitant]
     Route: 065
  3. OLANZAPINE. [Suspect]
     Active Substance: OLANZAPINE
     Indication: SENILE DEMENTIA
     Dosage: 2.5 MILLIGRAM DAILY;
     Route: 048
     Dates: start: 20180101, end: 20180619
  4. VYTORIN [Concomitant]
     Active Substance: EZETIMIBE\SIMVASTATIN
     Route: 065
  5. CITALOPRAM [Suspect]
     Active Substance: CITALOPRAM HYDROBROMIDE
     Indication: PSYCHOTIC DISORDER
     Dosage: 8 GTT DAILY;
     Route: 048
     Dates: start: 20180607, end: 20180619

REACTIONS (5)
  - Syncope [Recovering/Resolving]
  - Rectal haemorrhage [Recovering/Resolving]
  - Hyperventilation [Recovering/Resolving]
  - Vertigo [Recovering/Resolving]
  - Pain [Recovering/Resolving]

NARRATIVE: CASE EVENT DATE: 20180619
